FAERS Safety Report 5709047-6 (Version None)
Quarter: 2008Q2

REPORT INFORMATION
  Report Type: 
  Country: None (occurrence: None)
  Receive Date: 20080416
  Receipt Date: 20080416
  Transmission Date: 20081010
  Serious: No
  Sender: FDA-Public Use
  Company Number: None

PATIENT
  Age: 39 Year
  Sex: Female
  Weight: 99.7913 kg

DRUGS (4)
  1. CYMBALTA [Suspect]
     Indication: GENERALISED ANXIETY DISORDER
     Dosage: 1 30 MG CAPSULE EVERY OTHER DAY PO
     Route: 048
     Dates: start: 20080101, end: 20080415
  2. MULTI-VITAMIN [Concomitant]
  3. IRON SUPPLEMENT -SOLGAR 25MG IRON BISGLYCINATE [Concomitant]
  4. CALCIUM/MAGNESIUM SUPPLEMENT -PIONEER- [Concomitant]

REACTIONS (5)
  - DIZZINESS [None]
  - FEELING ABNORMAL [None]
  - ILL-DEFINED DISORDER [None]
  - NAUSEA [None]
  - WITHDRAWAL SYNDROME [None]
